FAERS Safety Report 8618891-7 (Version None)
Quarter: 2012Q3

REPORT INFORMATION
  Report Type: 
  Country: None (occurrence: None)
  Receive Date: 20120824
  Receipt Date: 20120815
  Transmission Date: 20120928
  Serious: Yes (Hospitalization)
  Sender: FDA-Public Use
  Company Number: CA-JNJFOC-20120806519

PATIENT
  Sex: Female
  Weight: 44 kg

DRUGS (7)
  1. PREDNISONE TAB [Concomitant]
     Route: 048
  2. RAMIPRIL [Concomitant]
     Route: 048
  3. VITAMIN [Concomitant]
     Route: 065
  4. METHOTREXATE [Concomitant]
     Route: 058
  5. FOLIC ACID [Concomitant]
     Route: 065
  6. REMICADE [Suspect]
     Indication: RHEUMATOID ARTHRITIS
     Route: 042
     Dates: start: 20110125
  7. ACTONEL [Concomitant]
     Route: 065

REACTIONS (4)
  - FALL [None]
  - CONTUSION [None]
  - EXCORIATION [None]
  - PELVIC FRACTURE [None]
